FAERS Safety Report 25263955 (Version 1)
Quarter: 2025Q2

REPORT INFORMATION
  Report Type: Spontaneous
  Country: US (occurrence: US)
  Receive Date: 20250502
  Receipt Date: 20250502
  Transmission Date: 20250716
  Serious: No
  Sender: BLUEPRINT MEDICINES CORPORATION
  Company Number: US-Blueprint Medicines Corporation-2025-AER-00897

PATIENT
  Age: 42 Year
  Sex: Female

DRUGS (1)
  1. AYVAKIT [Suspect]
     Active Substance: AVAPRITINIB
     Indication: Malignant mast cell neoplasm
     Route: 065
     Dates: start: 20250317

REACTIONS (6)
  - Petechiae [Unknown]
  - Ear discomfort [Unknown]
  - Peripheral swelling [Unknown]
  - Swelling face [Unknown]
  - Lacrimation increased [Unknown]
  - Off label use [Unknown]

NARRATIVE: CASE EVENT DATE: 20250317
